FAERS Safety Report 17434712 (Version 1)
Quarter: 2020Q1

REPORT INFORMATION
  Report Type: Spontaneous
  Country: US (occurrence: US)
  Receive Date: 20200219
  Receipt Date: 20200219
  Transmission Date: 20200409
  Serious: No
  Sender: FDA-Public Use
  Company Number: US-BAUSCH-BL-2020-003816

PATIENT
  Sex: Female

DRUGS (1)
  1. LOTEMAX SM [Suspect]
     Active Substance: LOTEPREDNOL ETABONATE
     Indication: PRODUCT USED FOR UNKNOWN INDICATION
     Dosage: ONE DROP A DAY IN LEFT EYE
     Route: 047

REACTIONS (3)
  - Swelling of eyelid [Unknown]
  - Ocular hyperaemia [Unknown]
  - Lacrimation increased [Unknown]
